FAERS Safety Report 19835214 (Version 1)
Quarter: 2021Q3

REPORT INFORMATION
  Report Type: Spontaneous
  Country: US (occurrence: US)
  Receive Date: 20210915
  Receipt Date: 20210915
  Transmission Date: 20211014
  Serious: No
  Sender: FDA-Public Use
  Company Number: US-SA-2021SA302167

PATIENT
  Age: 59 Year
  Sex: Female

DRUGS (1)
  1. KEVZARA [Suspect]
     Active Substance: SARILUMAB
     Indication: RHEUMATOID NODULE
     Dosage: 200 MG, QOW
     Route: 058
     Dates: start: 20210818

REACTIONS (4)
  - Product use in unapproved indication [Unknown]
  - Mental disorder [Unknown]
  - Peripheral swelling [Unknown]
  - Malaise [Unknown]
